FAERS Safety Report 9984012 (Version 1)
Quarter: 2014Q1

REPORT INFORMATION
  Report Type: Spontaneous
  Country: US (occurrence: US)
  Receive Date: 20140307
  Receipt Date: 20140307
  Transmission Date: 20141002
  Serious: No
  Sender: FDA-Public Use
  Company Number: US-ABBVIE-13P-163-1183101-00

PATIENT
  Age: 25 Year
  Sex: Female
  Weight: 90.8 kg

DRUGS (3)
  1. HUMIRA [Suspect]
     Indication: CROHN^S DISEASE
     Route: 058
     Dates: start: 2013, end: 2013
  2. HUMIRA [Suspect]
     Route: 058
     Dates: start: 2013, end: 2013
  3. HUMIRA [Suspect]
     Route: 058
     Dates: start: 2013, end: 201312

REACTIONS (1)
  - Rash [Unknown]
